FAERS Safety Report 25665707 (Version 3)
Quarter: 2025Q3

REPORT INFORMATION
  Report Type: Spontaneous
  Country: US (occurrence: US)
  Receive Date: 20250811
  Receipt Date: 20250911
  Transmission Date: 20251020
  Serious: No
  Sender: PFIZER
  Company Number: US-PFIZER INC-202500110661

PATIENT
  Age: 14 Year
  Sex: Female

DRUGS (10)
  1. GENOTROPIN [Suspect]
     Active Substance: SOMATROPIN
     Indication: Hypopituitarism
     Dosage: INJECTED 1.6 MG UNDER THE SKIN NIGHTLY
     Route: 058
     Dates: start: 20240102
  2. GENOTROPIN [Suspect]
     Active Substance: SOMATROPIN
     Indication: Growth hormone deficiency
     Route: 058
     Dates: start: 20240412
  3. GENOTROPIN [Suspect]
     Active Substance: SOMATROPIN
     Indication: Short stature
     Dosage: INJECTED 1.8 MG UNDER THE SKIN NIGHTLY
     Route: 058
     Dates: start: 20240805
  4. GENOTROPIN [Suspect]
     Active Substance: SOMATROPIN
     Dosage: INJECTED 2 MG INTO THE SKIN NIGHTLY
     Route: 058
     Dates: start: 20240808
  5. GENOTROPIN [Suspect]
     Active Substance: SOMATROPIN
     Route: 058
     Dates: start: 20241118
  6. GENOTROPIN [Suspect]
     Active Substance: SOMATROPIN
     Route: 058
     Dates: start: 20241120
  7. GENOTROPIN [Suspect]
     Active Substance: SOMATROPIN
     Dosage: INJECTED 2.2 MG UNDER THE SKIN NIGHTLY/QHS (0.33 MG/KG/WK)
     Route: 058
     Dates: start: 20250320
  8. GENOTROPIN [Suspect]
     Active Substance: SOMATROPIN
     Dosage: INJECTED 2.3 MG UNDER THE SKIN NIGHTLY
     Route: 058
     Dates: start: 20250321, end: 20250325
  9. GENOTROPIN [Suspect]
     Active Substance: SOMATROPIN
     Dosage: 2.4 MG/DAY, 7 DAYS/WEEK
     Dates: start: 20250724
  10. GENOTROPIN [Suspect]
     Active Substance: SOMATROPIN
     Route: 058
     Dates: start: 20250805

REACTIONS (6)
  - Non-high-density lipoprotein cholesterol increased [Unknown]
  - Blood alkaline phosphatase increased [Unknown]
  - Blood cholesterol increased [Unknown]
  - Blood triglycerides increased [Unknown]
  - Low density lipoprotein increased [Unknown]
  - Product prescribing error [Unknown]

NARRATIVE: CASE EVENT DATE: 20250321
